FAERS Safety Report 5448565-5 (Version None)
Quarter: 2007Q3

REPORT INFORMATION
  Report Type: 
  Country: None (occurrence: None)
  Receive Date: 20070911
  Receipt Date: 20070905
  Transmission Date: 20080115
  Serious: Yes (Hospitalization)
  Sender: FDA-Public Use
  Company Number: US-ELI_LILLY_AND_COMPANY-US200708005553

PATIENT
  Age: 71 Year
  Sex: Female
  Weight: 98.412 kg

DRUGS (5)
  1. BYETTA [Suspect]
     Indication: TYPE 2 DIABETES MELLITUS
     Dosage: 5 U, UNK
     Dates: start: 20070720, end: 20070726
  2. BYETTA [Suspect]
     Dosage: 10 UG, 2/D
     Dates: start: 20070727, end: 20070727
  3. BYETTA [Suspect]
     Dosage: 10 UG, DAILY (1/D)
     Dates: start: 20070728, end: 20070728
  4. LANTUS [Concomitant]
     Dosage: 30 U, EACH EVENING
  5. HUMALOG [Concomitant]
     Dosage: UNK U, 3/D

REACTIONS (4)
  - ABDOMINAL PAIN UPPER [None]
  - HOSPITALISATION [None]
  - RETCHING [None]
  - VOMITING [None]
